FAERS Safety Report 16955222 (Version 1)
Quarter: 2019Q4

REPORT INFORMATION
  Report Type: Spontaneous
  Country: JP (occurrence: JP)
  Receive Date: 20191024
  Receipt Date: 20191024
  Transmission Date: 20200122
  Serious: Yes (Other)
  Sender: FDA-Public Use
  Company Number: JP-SAKK-2019SA288449AA

PATIENT
  Age: 20 Year
  Sex: Female

DRUGS (2)
  1. DELLEGRA COMBINATION TABLETS [Suspect]
     Active Substance: FEXOFENADINE HYDROCHLORIDE\PSEUDOEPHEDRINE HYDROCHLORIDE
     Indication: RHINITIS ALLERGIC
     Dosage: DAILY DOSAGE: 4 TABLETS
     Route: 048
     Dates: start: 201804, end: 201909
  2. YAZ [Suspect]
     Active Substance: DROSPIRENONE\ETHINYL ESTRADIOL
     Indication: DYSMENORRHOEA
     Dosage: UNK
     Route: 048
     Dates: start: 201908, end: 201910

REACTIONS (3)
  - Condition aggravated [Unknown]
  - Nasal congestion [Unknown]
  - Nasal congestion [Unknown]

NARRATIVE: CASE EVENT DATE: 201909
